FAERS Safety Report 25785668 (Version 1)
Quarter: 2025Q3

REPORT INFORMATION
  Report Type: Spontaneous
  Country: EU (occurrence: EU)
  Receive Date: 20250910
  Receipt Date: 20250910
  Transmission Date: 20251021
  Serious: No
  Sender: ASTELLAS
  Company Number: None

PATIENT
  Age: 98 Year
  Sex: Female
  Weight: 80 kg

DRUGS (5)
  1. VESICARE [Suspect]
     Active Substance: SOLIFENACIN SUCCINATE
     Indication: Medication error
     Route: 048
     Dates: start: 20250524, end: 20250524
  2. PANTOPRAZOLE [Suspect]
     Active Substance: PANTOPRAZOLE
     Indication: Medication error
     Route: 048
     Dates: start: 20250524, end: 20250524
  3. FELODIPINE\METOPROLOL SUCCINATE [Suspect]
     Active Substance: FELODIPINE\METOPROLOL SUCCINATE
     Indication: Medication error
     Route: 048
     Dates: start: 20250524, end: 20250524
  4. AMOXICILLIN TRIHYDRATE [Suspect]
     Active Substance: AMOXICILLIN
     Indication: Medication error
     Route: 048
     Dates: start: 20250524, end: 20250524
  5. VENLAFAXINE HYDROCHLORIDE [Suspect]
     Active Substance: VENLAFAXINE HYDROCHLORIDE
     Indication: Medication error
     Route: 048
     Dates: start: 20250524, end: 20250524

REACTIONS (3)
  - Somnolence [Recovered/Resolved]
  - Asthenia [Recovered/Resolved]
  - Wrong patient received product [Recovered/Resolved]

NARRATIVE: CASE EVENT DATE: 20250524
